FAERS Safety Report 7820877-7 (Version None)
Quarter: 2011Q4

REPORT INFORMATION
  Report Type: 
  Country: None (occurrence: None)
  Receive Date: 20111018
  Receipt Date: 20111011
  Transmission Date: 20120403
  Serious: Yes (Hospitalization)
  Sender: FDA-Public Use
  Company Number: US-GLAXOSMITHKLINE-A0888753A

PATIENT
  Age: 62 Year
  Sex: Male
  Weight: 120.5 kg

DRUGS (3)
  1. AVANDIA [Suspect]
     Indication: DIABETES MELLITUS
     Dosage: 4MG PER DAY
     Route: 048
     Dates: start: 20010401, end: 20020901
  2. AMARYL [Concomitant]
  3. PROSCAR [Concomitant]

REACTIONS (7)
  - MYOCARDIAL INFARCTION [None]
  - CARDIAC ARREST [None]
  - ECONOMIC PROBLEM [None]
  - PAIN [None]
  - HYPERKALAEMIA [None]
  - CARDIAC FAILURE CONGESTIVE [None]
  - CORONARY ARTERY DISEASE [None]
